FAERS Safety Report 8564307-9 (Version None)
Quarter: 2012Q3

REPORT INFORMATION
  Report Type: 
  Country: None (occurrence: None)
  Receive Date: 20120803
  Receipt Date: 20120724
  Transmission Date: 20120928
  Serious: Yes (Hospitalization)
  Sender: FDA-Public Use
  Company Number: US-JNJFOC-20120612314

PATIENT
  Sex: Female
  Weight: 86.4 kg

DRUGS (3)
  1. CORTICOSTEROID [Suspect]
     Indication: PRODUCT USED FOR UNKNOWN INDICATION
  2. METHOTREXATE [Suspect]
     Indication: PRODUCT USED FOR UNKNOWN INDICATION
  3. INFLIXIMAB, RECOMBINANT [Suspect]
     Indication: PSORIASIS
     Route: 042
     Dates: start: 20090301

REACTIONS (2)
  - DIABETIC FOOT INFECTION [None]
  - STAPHYLOCOCCAL INFECTION [None]
